FAERS Safety Report 10534834 (Version 6)
Quarter: 2015Q1

REPORT INFORMATION
  Report Type: Spontaneous
  Country: IT (occurrence: IT)
  Receive Date: 20141022
  Receipt Date: 20150204
  Transmission Date: 20150720
  Serious: Yes (Hospitalization)
  Sender: FDA-Public Use
  Company Number: IT-PFIZER INC-2014288725

PATIENT
  Age: 55 Year
  Sex: Female

DRUGS (4)
  1. ALPRAZOLAM. [Suspect]
     Active Substance: ALPRAZOLAM
     Dosage: 20 ML, ONE BOTTLE, SINGLE (20 ML, TOTAL)
     Route: 048
  2. ETIZOLAM [Suspect]
     Active Substance: ETIZOLAM
     Dosage: 30 ML, ONE BOTTLE, SINGLE (30 ML, TOTAL)
     Route: 048
  3. DEXAMETHASONE. [Concomitant]
     Active Substance: DEXAMETHASONE
     Dosage: UNK
     Route: 030
  4. KEPPRA [Concomitant]
     Active Substance: LEVETIRACETAM
     Dosage: 500 MG, UNK
     Route: 048
     Dates: start: 20130820, end: 20140929

REACTIONS (3)
  - Drug abuse [Recovered/Resolved]
  - Altered state of consciousness [Recovered/Resolved]
  - Sopor [Recovered/Resolved]

NARRATIVE: CASE EVENT DATE: 20140929
